FAERS Safety Report 20855587 (Version 1)
Quarter: 2022Q2

REPORT INFORMATION
  Report Type: Spontaneous
  Country: PT (occurrence: PT)
  Receive Date: 20220520
  Receipt Date: 20220520
  Transmission Date: 20220721
  Serious: Yes (Other)
  Sender: FDA-Public Use
  Company Number: None

PATIENT
  Age: 47 Year
  Sex: Male
  Weight: 89 kg

DRUGS (5)
  1. CISPLATIN [Suspect]
     Active Substance: CISPLATIN
     Indication: Testis cancer
     Dosage: 41.2MG (20MG/M2) DILUTED IN 250ML OVER 5 CONSECUTIVE DAYS (04/04 - 04/08) - PROTOCOL BEP,DURATION 4D
     Route: 065
     Dates: start: 20220404, end: 20220408
  2. DEXAMETHASONE [Concomitant]
     Active Substance: DEXAMETHASONE
     Indication: Premedication
     Dosage: 10 MG IV
     Route: 042
  3. ONDANSETRON [Concomitant]
     Active Substance: ONDANSETRON
     Indication: Premedication
     Dosage: 16 MG, IV
     Route: 042
  4. ETOPOSIDE [Concomitant]
     Active Substance: ETOPOSIDE
     Indication: Testis cancer
     Dosage: ETOPOSIDE(100MG/M2) D1-D5, 206MG
     Route: 042
  5. BLEOMYCIN [Concomitant]
     Active Substance: BLEOMYCIN SULFATE
     Indication: Testis cancer
     Dosage: BLEOMYCIN D1, D8 AND D15

REACTIONS (2)
  - Dizziness [Recovered/Resolved]
  - Vision blurred [Recovered/Resolved]

NARRATIVE: CASE EVENT DATE: 20220407
